FAERS Safety Report 8460474-6 (Version None)
Quarter: 2012Q2

REPORT INFORMATION
  Report Type: 
  Country: None (occurrence: None)
  Receive Date: 20120622
  Receipt Date: 20120619
  Transmission Date: 20120825
  Serious: Yes (Other)
  Sender: FDA-Public Use
  Company Number: US-PFIZER INC-2012148312

PATIENT
  Sex: Female
  Weight: 91 kg

DRUGS (4)
  1. LEVOTHYROXINE SODIUM [Suspect]
     Indication: HYPOTHYROIDISM
     Dosage: 50 UG, DAILY
     Route: 048
     Dates: start: 20090101
  2. HYDROCORTISONE ACETATE [Suspect]
     Indication: HYPOTHALAMO-PITUITARY DISORDER
     Dosage: 20 MG (4 TABLETS OF 5 MG) IN MORNING AND 5MG AT 2PM
     Route: 048
     Dates: start: 20090101
  3. SYNTHROID [Suspect]
     Indication: HYPOTHYROIDISM
     Dosage: 50 UG, DAILY
     Route: 048
     Dates: start: 20090101
  4. CORTEF ACETATE [Suspect]
     Indication: HYPOTHALAMO-PITUITARY DISORDER
     Dosage: 20 MG (4 TABLETS OF 5 MG) IN MORNING AND 5MG AT 2PM
     Route: 048
     Dates: start: 20090101

REACTIONS (1)
  - LYME DISEASE [None]
